FAERS Safety Report 4290323-1 (Version None)
Quarter: 2004Q1

REPORT INFORMATION
  Report Type: 
  Country: None (occurrence: None)
  Receive Date: 20040210
  Receipt Date: 20040203
  Transmission Date: 20041129
  Serious: Yes (Other)
  Sender: FDA-Public Use
  Company Number: US-BRISTOL-MYERS SQUIBB COMPANY-12494712

PATIENT
  Age: 14 Year
  Sex: Female

DRUGS (1)
  1. BUSPAR [Suspect]

REACTIONS (2)
  - HALLUCINATION [None]
  - MURDER [None]
